FAERS Safety Report 20972341 (Version 3)
Quarter: 2022Q2

REPORT INFORMATION
  Report Type: Spontaneous
  Country: RU (occurrence: RU)
  Receive Date: 20220617
  Receipt Date: 20220622
  Transmission Date: 20220721
  Serious: Yes (Hospitalization, Other)
  Sender: FDA-Public Use
  Company Number: None

PATIENT
  Sex: Female

DRUGS (14)
  1. DEXAMETHASONE [Suspect]
     Active Substance: DEXAMETHASONE
     Indication: Diffuse large B-cell lymphoma
     Dosage: UNK
     Route: 065
     Dates: start: 20170826, end: 20170830
  2. DEXAMETHASONE [Suspect]
     Active Substance: DEXAMETHASONE
     Indication: Post transplant lymphoproliferative disorder
     Dosage: 80 MILLIGRAM,1ST COURSE OF CHOD PROTOCOL IN COMBINATION WITH RITUXIMAB
     Route: 065
     Dates: start: 20170831, end: 20170905
  3. DEXAMETHASONE [Suspect]
     Active Substance: DEXAMETHASONE
     Dosage: UNK,FIVE R-CHOD COURSES WERE PERFORMED.
     Route: 065
     Dates: start: 20170926, end: 20180111
  4. DEXAMETHASONE [Suspect]
     Active Substance: DEXAMETHASONE
     Dosage: UNK
     Route: 065
  5. DOXORUBICIN [Suspect]
     Active Substance: DOXORUBICIN
     Indication: Diffuse large B-cell lymphoma
     Dosage: 75 MILLIGRAM, 1ST COURSE OF CHOD PROTOCOL IN COMBINATION WITH RITUXIMAB
     Route: 065
     Dates: start: 20170831, end: 20170905
  6. DOXORUBICIN [Suspect]
     Active Substance: DOXORUBICIN
     Indication: Post transplant lymphoproliferative disorder
     Dosage: UNK, FIVE R-CHOD COURSES WERE PERFORMED
     Route: 065
     Dates: start: 20170926, end: 20180111
  7. CYCLOPHOSPHAMIDE [Suspect]
     Active Substance: CYCLOPHOSPHAMIDE
     Indication: Diffuse large B-cell lymphoma
     Dosage: 1200 MILLIGRAM
     Route: 065
     Dates: start: 20170826, end: 20170830
  8. CYCLOPHOSPHAMIDE [Suspect]
     Active Substance: CYCLOPHOSPHAMIDE
     Indication: Post transplant lymphoproliferative disorder
     Dosage: 1200 MILLIGRAM,1ST COURSE OF CHOD PROTOCOL IN COMBINATION WITH RITUXIMAB
     Route: 065
     Dates: start: 20170831, end: 20170905
  9. CYCLOPHOSPHAMIDE [Suspect]
     Active Substance: CYCLOPHOSPHAMIDE
     Dosage: UNK,FIVE R-CHOD COURSES WERE PERFORMED.
     Route: 065
     Dates: start: 20170926, end: 20180111
  10. CYCLOPHOSPHAMIDE [Suspect]
     Active Substance: CYCLOPHOSPHAMIDE
     Dosage: UNK
     Route: 065
  11. RITUXIMAB [Suspect]
     Active Substance: RITUXIMAB
     Indication: Diffuse large B-cell lymphoma
     Dosage: 600 MILLIGRAM, 1ST COURSE OF CHOD PROTOCOL IN COMBINATION WITH RITUXIMAB
     Route: 065
     Dates: start: 20170831, end: 20170905
  12. RITUXIMAB [Suspect]
     Active Substance: RITUXIMAB
     Indication: Post transplant lymphoproliferative disorder
     Dosage: UNK,FIVE R-CHOD COURSES WERE PERFORMED.
     Route: 065
     Dates: start: 20170926, end: 20180111
  13. VINCRISTINE [Suspect]
     Active Substance: VINCRISTINE
     Indication: Diffuse large B-cell lymphoma
     Dosage: 2 MILLIGRAM,1ST COURSE OF CHOD PROTOCOL IN COMBINATION WITH RITUXIMAB
     Route: 065
     Dates: start: 20170831, end: 20170905
  14. VINCRISTINE [Suspect]
     Active Substance: VINCRISTINE
     Indication: Post transplant lymphoproliferative disorder
     Dosage: UNK,FIVE R-CHOD COURSES WERE PERFORMED.
     Route: 065
     Dates: start: 20170926, end: 20180111

REACTIONS (6)
  - Respiratory failure [Unknown]
  - Acute kidney injury [Unknown]
  - Pyrexia [Unknown]
  - Oropharyngeal candidiasis [Unknown]
  - Septic shock [Unknown]
  - Pneumonia [Unknown]

NARRATIVE: CASE EVENT DATE: 20170101
